FAERS Safety Report 8073619-7 (Version None)
Quarter: 2012Q1

REPORT INFORMATION
  Report Type: 
  Country: None (occurrence: None)
  Receive Date: 20120119
  Receipt Date: 20120109
  Transmission Date: 20120608
  Serious: Yes (Other)
  Sender: FDA-Public Use
  Company Number: AUR-APL-2012-00445

PATIENT
  Age: 19 Year
  Sex: Male

DRUGS (1)
  1. TOPIRAMATE [Suspect]
     Indication: MIGRAINE
     Dosage: 50 MG (25 MG, 2 IN 1 D),

REACTIONS (7)
  - CORNEAL OEDEMA [None]
  - MYOPIA [None]
  - CONDITION AGGRAVATED [None]
  - HEADACHE [None]
  - CONJUNCTIVAL HYPERAEMIA [None]
  - VISUAL ACUITY REDUCED [None]
  - INTRAOCULAR PRESSURE INCREASED [None]
